FAERS Safety Report 24800179 (Version 1)
Quarter: 2025Q1

REPORT INFORMATION
  Report Type: Spontaneous
  Country: US (occurrence: None)
  Receive Date: 20250101
  Receipt Date: 20250101
  Transmission Date: 20250409
  Serious: Yes (Hospitalization, Disabling)
  Sender: FDA-CTU
  Company Number: None

PATIENT
  Age: 47 Year
  Sex: Female
  Weight: 119.25 kg

DRUGS (2)
  1. METRONIDAZOLE [Suspect]
     Active Substance: METRONIDAZOLE
     Indication: Trichomoniasis
     Dates: start: 20231124, end: 20231130
  2. Alevr midpl [Concomitant]

REACTIONS (4)
  - Anxiety [None]
  - Panic attack [None]
  - Vision blurred [None]
  - Neuropathy peripheral [None]

NARRATIVE: CASE EVENT DATE: 20231204
